FAERS Safety Report 7023475-0 (Version None)
Quarter: 2010Q3

REPORT INFORMATION
  Report Type: 
  Country: None (occurrence: None)
  Receive Date: 20100929
  Receipt Date: 20100920
  Transmission Date: 20110219
  Serious: Yes (Hospitalization)
  Sender: FDA-Public Use
  Company Number: 2010US003865

PATIENT
  Age: 72 Year
  Sex: Male
  Weight: 91 kg

DRUGS (2)
  1. PROGRAF [Suspect]
     Indication: RENAL TRANSPLANT
     Dosage: 3 MG BID UNKNOWN
  2. METRONIDAZOLE [Concomitant]

REACTIONS (2)
  - DIVERTICULITIS [None]
  - INFECTION [None]
